FAERS Safety Report 5158268-2 (Version None)
Quarter: 2006Q4

REPORT INFORMATION
  Report Type: 
  Country: None (occurrence: None)
  Receive Date: 20061121
  Receipt Date: 20061121
  Transmission Date: 20070319
  Serious: Yes (Hospitalization)
  Sender: FDA-Public Use
  Company Number: None

PATIENT
  Age: 52 Year
  Sex: Male
  Weight: 90.2658 kg

DRUGS (2)
  1. CLOPIDOGREL [Suspect]
     Indication: CORONARY ARTERY DISEASE
     Dosage: 75 MG DAILY PO
     Route: 048
     Dates: start: 20060801, end: 20060905
  2. CLOPIDOGREL [Suspect]
     Indication: STENT PLACEMENT
     Dosage: 75 MG DAILY PO
     Route: 048
     Dates: start: 20060801, end: 20060905

REACTIONS (3)
  - ANGINA UNSTABLE [None]
  - PHARMACEUTICAL PRODUCT COMPLAINT [None]
  - THROMBOSIS IN DEVICE [None]
